FAERS Safety Report 8479312-0 (Version None)
Quarter: 2012Q2

REPORT INFORMATION
  Report Type: 
  Country: None (occurrence: None)
  Receive Date: 20120629
  Receipt Date: 20120625
  Transmission Date: 20120825
  Serious: Yes (Other)
  Sender: FDA-Public Use
  Company Number: NO-GLAXOSMITHKLINE-B0811209A

PATIENT
  Sex: Male
  Weight: 155 kg

DRUGS (11)
  1. VENTOLIN [Concomitant]
     Indication: ASTHMA
     Route: 055
  2. BUMETANIDE [Concomitant]
     Indication: DIURETIC THERAPY
     Dosage: 1MG PER DAY
     Route: 048
     Dates: end: 20110101
  3. METOPROLOL SUCCINATE [Concomitant]
     Indication: PRODUCT USED FOR UNKNOWN INDICATION
     Dosage: 150MG PER DAY
     Route: 048
     Dates: end: 20110101
  4. FORMOTEROL FUMARATE [Concomitant]
     Indication: ASTHMA
     Route: 055
     Dates: start: 20100101
  5. SYMBICORT [Concomitant]
     Indication: ASTHMA
     Route: 055
  6. GLUCOPHAGE [Concomitant]
     Indication: TYPE 2 DIABETES MELLITUS
     Dosage: 3000MG PER DAY
     Route: 048
  7. ENALAPRIL MALEATE [Concomitant]
     Indication: HYPERTENSION
     Dosage: 20MG PER DAY
     Route: 048
  8. AMLODIPINE [Concomitant]
     Indication: HYPERTENSION
     Dosage: 10MG PER DAY
     Route: 048
     Dates: end: 20110101
  9. ATACAND [Concomitant]
     Indication: HYPERTENSION
     Dosage: 16MG PER DAY
     Route: 048
  10. AVANDIA [Suspect]
     Indication: TYPE 2 DIABETES MELLITUS
     Dosage: 4MG PER DAY
     Route: 048
     Dates: start: 20071001, end: 20101027
  11. SIMVASTATIN [Concomitant]
     Indication: HYPERCHOLESTEROLAEMIA
     Dosage: 10MG PER DAY
     Route: 048
     Dates: end: 20110101

REACTIONS (7)
  - CARDIAC FAILURE [None]
  - DYSPNOEA [None]
  - ELECTROCARDIOGRAM QT PROLONGED [None]
  - ASTHMA [None]
  - OEDEMA PERIPHERAL [None]
  - BUNDLE BRANCH BLOCK LEFT [None]
  - HYPERCHOLESTEROLAEMIA [None]
